FAERS Safety Report 13502672 (Version 1)
Quarter: 2017Q2

REPORT INFORMATION
  Report Type: Spontaneous
  Country: US (occurrence: US)
  Receive Date: 20170501
  Receipt Date: 20170501
  Transmission Date: 20170830
  Serious: Yes (Other)
  Sender: FDA-Public Use
  Company Number: None

PATIENT
  Age: 64 Year
  Sex: Male
  Weight: 74.25 kg

DRUGS (15)
  1. DOXEPIN [Concomitant]
     Active Substance: DOXEPIN
  2. VITAMIN D3 [Concomitant]
     Active Substance: CHOLECALCIFEROL
  3. MINERALS [Concomitant]
     Active Substance: MINERALS
  4. SUPPLEMENTS [Concomitant]
     Active Substance: UNSPECIFIED INGREDIENT
  5. XARELTO [Suspect]
     Active Substance: RIVAROXABAN
     Indication: THROMBOSIS
     Dosage: ?          QUANTITY:52 TABLET(S);?
     Route: 048
     Dates: start: 20160325, end: 20160330
  6. LEVSIN [Concomitant]
     Active Substance: HYOSCYAMINE SULFATE
  7. RESVERATROL [Concomitant]
     Active Substance: DIETARY SUPPLEMENT\RESVERATROL
  8. PAROXETINE. [Concomitant]
     Active Substance: PAROXETINE
  9. HERBS [Concomitant]
     Active Substance: HERBALS
  10. DIAZEPAM. [Concomitant]
     Active Substance: DIAZEPAM
  11. NASACORT [Concomitant]
     Active Substance: TRIAMCINOLONE ACETONIDE
  12. LEVOTHYROXINE/SYNTHROID [Concomitant]
  13. PROMETHAXINE [Concomitant]
  14. METOPROLOL. [Concomitant]
     Active Substance: METOPROLOL
  15. VITAMIN B12 COMPLEX [Concomitant]

REACTIONS (4)
  - Blood urine present [None]
  - Haemorrhage [None]
  - Therapy cessation [None]
  - Haematochezia [None]

NARRATIVE: CASE EVENT DATE: 20160330
